FAERS Safety Report 25810257 (Version 1)
Quarter: 2025Q3

REPORT INFORMATION
  Report Type: Spontaneous
  Country: MX (occurrence: MX)
  Receive Date: 20250917
  Receipt Date: 20250917
  Transmission Date: 20251021
  Serious: Yes (Other)
  Sender: ASTELLAS
  Company Number: MX-ASTELLAS-2025-AER-050957

PATIENT
  Age: 55 Year
  Sex: Male

DRUGS (3)
  1. TACROLIMUS [Suspect]
     Active Substance: TACROLIMUS
     Indication: Renal and liver transplant
     Route: 065
     Dates: start: 202103
  2. MYCOPHENOLATE MOFETIL [Concomitant]
     Active Substance: MYCOPHENOLATE MOFETIL
     Indication: Renal and liver transplant
     Route: 065
     Dates: start: 202103
  3. PREDNISONE [Concomitant]
     Active Substance: PREDNISONE
     Indication: Renal and liver transplant
     Route: 065
     Dates: start: 202103

REACTIONS (2)
  - Tubulointerstitial nephritis [Recovering/Resolving]
  - Microsporidia infection [Recovering/Resolving]

NARRATIVE: CASE EVENT DATE: 20210401
